FAERS Safety Report 12118801 (Version 3)
Quarter: 2016Q1

REPORT INFORMATION
  Report Type: Spontaneous
  Country: MY (occurrence: MY)
  Receive Date: 20160226
  Receipt Date: 20160323
  Transmission Date: 20160526
  Serious: Yes (Other)
  Sender: FDA-Public Use
  Company Number: MY-SUN PHARMACEUTICAL INDUSTRIES LTD-2016RR-112270

PATIENT
  Age: 74 Year
  Sex: Male

DRUGS (6)
  1. VINORELBINE [Suspect]
     Active Substance: VINORELBINE\VINORELBINE TARTRATE
     Indication: MYCOSIS FUNGOIDES
     Dosage: 40 MG, WEEKLY (1/W)FIVE CYCLES
     Route: 065
  2. METHOTREXATE [Concomitant]
     Active Substance: METHOTREXATE
     Indication: MYCOSIS FUNGOIDES
     Dosage: UNK
     Route: 065
  3. FLUDARABINE [Concomitant]
     Active Substance: FLUDARABINE PHOSPHATE
     Indication: MYCOSIS FUNGOIDES
     Dosage: UNK
     Route: 065
  4. INTERFERON [Concomitant]
     Active Substance: INTERFERON
     Indication: MYCOSIS FUNGOIDES
     Dosage: UNK
     Route: 065
  5. GEMCITABINE [Suspect]
     Active Substance: GEMCITABINE\GEMCITABINE HYDROCHLORIDE
     Indication: MYCOSIS FUNGOIDES
     Dosage: 1000 MG/M2, CYCLICAL FIVE CYCLES
     Route: 042
  6. CYCLOPHOSPHAMIDE. [Concomitant]
     Active Substance: CYCLOPHOSPHAMIDE
     Indication: MYCOSIS FUNGOIDES
     Dosage: UNK
     Route: 065

REACTIONS (1)
  - Pancytopenia [Unknown]
